FAERS Safety Report 5008682-0 (Version None)
Quarter: 2006Q2

REPORT INFORMATION
  Report Type: 
  Country: None (occurrence: None)
  Receive Date: 20060523
  Receipt Date: 20060517
  Transmission Date: 20061013
  Serious: Yes (Hospitalization)
  Sender: FDA-Public Use
  Company Number: FR-GLAXOSMITHKLINE-B0424569A

PATIENT
  Age: 66 Year
  Sex: Male

DRUGS (3)
  1. AUGMENTIN '125' [Suspect]
     Dosage: 1G THREE TIMES PER DAY
     Route: 042
     Dates: start: 20060327, end: 20060330
  2. NEXIUM [Suspect]
     Dosage: 1TAB PER DAY
     Route: 048
     Dates: start: 20060327, end: 20060403
  3. PARACETAMOL [Concomitant]
     Route: 065

REACTIONS (2)
  - DERMATITIS EXFOLIATIVE [None]
  - PRURIGO [None]
